FAERS Safety Report 8477036-7 (Version None)
Quarter: 2012Q2

REPORT INFORMATION
  Report Type: 
  Country: None (occurrence: None)
  Receive Date: 20120629
  Receipt Date: 20120615
  Transmission Date: 20120825
  Serious: Yes (Death, Hospitalization)
  Sender: FDA-Public Use
  Company Number: DK-RANBAXY-2009RR-25812

PATIENT
  Sex: Female
  Weight: 60 kg

DRUGS (6)
  1. FURIX RETARD [Concomitant]
     Indication: FLUID RETENTION
     Dosage: 60 MG, QD
     Route: 048
     Dates: start: 20030101
  2. SIMVASTATIN [Suspect]
     Indication: HYPERCHOLESTEROLAEMIA
     Dosage: 40 MG, QD
     Route: 048
     Dates: start: 20050101, end: 20090508
  3. ETALPHA [Concomitant]
     Indication: VITAMIN D DEFICIENCY
     Dosage: 0.5 MG, TID
     Route: 048
     Dates: start: 20080808
  4. IOMERON-150 [Suspect]
     Indication: SCAN WITH CONTRAST
     Dosage: 85 ML, UNK
     Route: 042
     Dates: start: 20090422, end: 20090508
  5. FERRO DURETTER [Concomitant]
     Indication: PRODUCT USED FOR UNKNOWN INDICATION
     Dosage: 100 MG, QD
     Route: 048
     Dates: start: 20070427
  6. RAMIPRIL [Concomitant]
     Indication: HYPERTENSION
     Dosage: 5 MG, QD
     Route: 065
     Dates: start: 20070727

REACTIONS (3)
  - RHABDOMYOLYSIS [None]
  - DRUG INTERACTION [None]
  - DIZZINESS [None]
